FAERS Safety Report 6828974-X (Version None)
Quarter: 2010Q3

REPORT INFORMATION
  Report Type: 
  Country: None (occurrence: None)
  Receive Date: 20100706
  Receipt Date: 20091214
  Transmission Date: 20110219
  Serious: Yes (Other)
  Sender: FDA-Public Use
  Company Number: 2009AL007765

PATIENT
  Age: 34 Year
  Sex: Female

DRUGS (6)
  1. CETIRIZINE HCL [Suspect]
     Indication: URTICARIA
  2. HYDROXYZINE HCL [Suspect]
     Indication: URTICARIA
     Dosage: 25 MG
  3. FEXOFENADINE [Concomitant]
  4. OLOPATADINE [Concomitant]
  5. CHLORPHENAMINE [Concomitant]
  6. EBASTINE [Concomitant]

REACTIONS (6)
  - ABDOMINAL PAIN [None]
  - DRUG INEFFECTIVE [None]
  - HYPERSENSITIVITY [None]
  - RASH ERYTHEMATOUS [None]
  - URTICARIA [None]
  - VOMITING [None]
